FAERS Safety Report 7969530-X (Version None)
Quarter: 2011Q4

REPORT INFORMATION
  Report Type: 
  Country: None (occurrence: None)
  Receive Date: 20111212
  Receipt Date: 20111208
  Transmission Date: 20120403
  Serious: No
  Sender: FDA-Public Use
  Company Number: US-PFIZER INC-2011185770

PATIENT
  Age: 69 Year
  Sex: Male

DRUGS (2)
  1. METFORMIN [Concomitant]
     Indication: DIABETES MELLITUS
     Dosage: 500MG ONCE DAILY
  2. ALTACE [Suspect]
     Indication: PROPHYLAXIS
     Dosage: 2.5MG, UNK
     Route: 048
     Dates: start: 20090101

REACTIONS (1)
  - ALOPECIA [None]
